FAERS Safety Report 9670254 (Version 2)
Quarter: 2013Q4

REPORT INFORMATION
  Report Type: Spontaneous
  Country: US (occurrence: None)
  Receive Date: 20131104
  Receipt Date: 20131206
  Transmission Date: 20140711
  Serious: Yes (Other)
  Sender: FDA-Public Use
  Company Number: AUR-APL-2013-08912

PATIENT
  Sex: Female

DRUGS (1)
  1. RIZATRIPTAN [Suspect]
     Indication: MIGRAINE

REACTIONS (3)
  - Chest pain [None]
  - Product taste abnormal [None]
  - Drug ineffective [None]
